FAERS Safety Report 10458737 (Version 2)
Quarter: 2014Q3

REPORT INFORMATION
  Report Type: Report from Study
  Country: JP (occurrence: JP)
  Receive Date: 20140917
  Receipt Date: 20140929
  Transmission Date: 20150326
  Serious: Yes (Life-Threatening)
  Sender: FDA-Public Use
  Company Number: JP-JNJFOC-20140909430

PATIENT
  Age: 82 Year
  Sex: Male
  Weight: 73 kg

DRUGS (12)
  1. XARELTO [Suspect]
     Active Substance: RIVAROXABAN
     Indication: CEREBROVASCULAR ACCIDENT PROPHYLAXIS
     Route: 048
     Dates: start: 20130913, end: 20140825
  2. FEROTYM [Concomitant]
     Active Substance: FERROUS CITRATE\SODIUM
     Indication: PROPHYLAXIS
     Route: 048
  3. CARDENALIN [Concomitant]
     Active Substance: DOXAZOSIN MESYLATE
     Route: 048
     Dates: start: 20140711
  4. DEPAS [Concomitant]
     Active Substance: ETIZOLAM
     Route: 048
     Dates: end: 20140627
  5. AZULAVINE [Concomitant]
     Route: 048
  6. XARELTO [Suspect]
     Active Substance: RIVAROXABAN
     Indication: ATRIAL FIBRILLATION
     Route: 048
     Dates: start: 20130913, end: 20140825
  7. XARELTO [Suspect]
     Active Substance: RIVAROXABAN
     Indication: THROMBOSIS PROPHYLAXIS
     Route: 048
     Dates: start: 20130913, end: 20140825
  8. NORVASC [Concomitant]
     Active Substance: AMLODIPINE BESYLATE
     Route: 048
  9. FERROMIA [Concomitant]
     Active Substance: FERROUS CITRATE
     Indication: PROPHYLAXIS
     Route: 048
  10. ROZEREM [Concomitant]
     Active Substance: RAMELTEON
     Route: 048
  11. GASTER [Concomitant]
     Active Substance: FAMOTIDINE
     Route: 048
  12. TAKEPRON [Concomitant]
     Active Substance: LANSOPRAZOLE
     Route: 048

REACTIONS (1)
  - Haemorrhagic stroke [Not Recovered/Not Resolved]

NARRATIVE: CASE EVENT DATE: 20140825
